FAERS Safety Report 4563752-6 (Version None)
Quarter: 2005Q1

REPORT INFORMATION
  Report Type: 
  Country: None (occurrence: None)
  Receive Date: 20050128
  Receipt Date: 20041118
  Transmission Date: 20050727
  Serious: Yes (Other)
  Sender: FDA-Public Use
  Company Number: 200413733JP

PATIENT
  Age: 43 Year
  Sex: Male
  Weight: 75.3 kg

DRUGS (5)
  1. KETEK [Suspect]
     Indication: BRONCHITIS ACUTE
     Route: 048
     Dates: start: 20041112, end: 20041112
  2. BEZATOL - SLOW RELEASE [Concomitant]
     Indication: HYPERLIPIDAEMIA
     Route: 048
     Dates: start: 20040128
  3. RESPLEN [Concomitant]
     Indication: BRONCHITIS ACUTE
     Route: 048
     Dates: start: 20041112, end: 20041112
  4. CALONAL [Concomitant]
     Indication: BRONCHITIS ACUTE
     Route: 048
     Dates: start: 20041112, end: 20041112
  5. NOVORAPID [Concomitant]
     Route: 058
     Dates: start: 20030825

REACTIONS (5)
  - ACCOMMODATION DISORDER [None]
  - BALANCE DISORDER [None]
  - DIPLOPIA [None]
  - FEELING ABNORMAL [None]
  - PHARYNGOLARYNGEAL PAIN [None]
